FAERS Safety Report 23459148 (Version 8)
Quarter: 2024Q2

REPORT INFORMATION
  Report Type: Spontaneous
  Country: CA (occurrence: CA)
  Receive Date: 20240131
  Receipt Date: 20240626
  Transmission Date: 20240715
  Serious: Yes (Other)
  Sender: FDA-Public Use
  Company Number: CA-CELLTRION INC.-2024CA000330

PATIENT

DRUGS (5)
  1. INFLECTRA [Suspect]
     Active Substance: INFLIXIMAB-DYYB
     Indication: Crohn^s disease
     Dosage: 1100 MG, EVERY 6 WEEKS
     Route: 042
     Dates: start: 20220425
  2. INFLECTRA [Suspect]
     Active Substance: INFLIXIMAB-DYYB
     Dosage: 1100 MG, EVERY 6 WEEKS
     Route: 042
     Dates: start: 20221120
  3. INFLECTRA [Suspect]
     Active Substance: INFLIXIMAB-DYYB
     Dosage: 1100 MG, EVERY 6 WEEKS
     Route: 042
     Dates: start: 20240206
  4. INFLECTRA [Suspect]
     Active Substance: INFLIXIMAB-DYYB
     Dosage: 1100 MG, EVERY 6 WEEKS
     Route: 042
     Dates: start: 20240319
  5. PANTOPRAZOLE [Concomitant]
     Active Substance: PANTOPRAZOLE
     Dosage: 1 DF

REACTIONS (15)
  - Otorrhoea [Recovered/Resolved]
  - Tympanic membrane perforation [Recovered/Resolved]
  - Bronchitis [Not Recovered/Not Resolved]
  - Otitis media [Not Recovered/Not Resolved]
  - Condition aggravated [Not Recovered/Not Resolved]
  - Nasal congestion [Recovering/Resolving]
  - Secretion discharge [Recovered/Resolved]
  - Dysphonia [Not Recovered/Not Resolved]
  - Pain in jaw [Recovering/Resolving]
  - Joint swelling [Unknown]
  - Proctalgia [Not Recovered/Not Resolved]
  - Anorectal discomfort [Not Recovered/Not Resolved]
  - Myalgia [Not Recovered/Not Resolved]
  - Nasopharyngitis [Not Recovered/Not Resolved]
  - Chronic sinusitis [Not Recovered/Not Resolved]

NARRATIVE: CASE EVENT DATE: 20230101
